FAERS Safety Report 9301841 (Version 1)
Quarter: 2013Q2

REPORT INFORMATION
  Report Type: Spontaneous
  Country: US (occurrence: US)
  Receive Date: 20130521
  Receipt Date: 20130521
  Transmission Date: 20140414
  Serious: No
  Sender: FDA-Public Use
  Company Number: US-TEVA-353577USA

PATIENT
  Sex: Male

DRUGS (3)
  1. ACTIQ [Suspect]
     Route: 002
  2. ACTIQ [Suspect]
     Route: 002
  3. CHEMOTHERAPEUTICS NOS [Suspect]

REACTIONS (2)
  - Tremor [Unknown]
  - Mental impairment [Unknown]
